FAERS Safety Report 24238190 (Version 1)
Quarter: 2024Q3

REPORT INFORMATION
  Report Type: Spontaneous
  Country: US (occurrence: US)
  Receive Date: 20240822
  Receipt Date: 20240822
  Transmission Date: 20241016
  Serious: Yes (Death, Other)
  Sender: AMGEN
  Company Number: US-AMGEN-USASP2024164103

PATIENT
  Age: 80 Year
  Sex: Female

DRUGS (2)
  1. TALIMOGENE LAHERPAREPVEC [Suspect]
     Active Substance: TALIMOGENE LAHERPAREPVEC
     Indication: Neuroendocrine carcinoma of the skin
     Dosage: UNK,
     Route: 026
  2. TALIMOGENE LAHERPAREPVEC [Suspect]
     Active Substance: TALIMOGENE LAHERPAREPVEC
     Indication: Off label use

REACTIONS (4)
  - Neuroendocrine carcinoma of the skin [Fatal]
  - Gene mutation [Unknown]
  - Drug ineffective for unapproved indication [Unknown]
  - Off label use [Unknown]
